FAERS Safety Report 15703061 (Version 2)
Quarter: 2018Q4

REPORT INFORMATION
  Report Type: Report from Study
  Country: DE (occurrence: DE)
  Receive Date: 20181210
  Receipt Date: 20181218
  Transmission Date: 20190205
  Serious: Yes (Hospitalization, Other)
  Sender: FDA-Public Use
  Company Number: DE-ROCHE-2072255

PATIENT
  Age: 86 Year
  Sex: Female
  Weight: 75 kg

DRUGS (3)
  1. IBRUTINIB [Suspect]
     Active Substance: IBRUTINIB
     Indication: CHRONIC LYMPHOCYTIC LEUKAEMIA
     Dosage: CYCLE 1-15 (420 MG DAILY)?LAST DAILY DOSE 280 MG PRIOR TO SAE: 29/NOV/2017
     Route: 048
     Dates: start: 20170816
  2. VENETOCLAX. [Suspect]
     Active Substance: VENETOCLAX
     Indication: CHRONIC LYMPHOCYTIC LEUKAEMIA
     Dosage: CYCLE 1 (LAST 7 DAYS 20 MG DAILY)?LAST DAILY DOSE 200 MG PRIOR TO SAE: 08/FEB/2018
     Route: 048
     Dates: start: 20170905
  3. OBINUTUZUMAB. [Suspect]
     Active Substance: OBINUTUZUMAB
     Indication: CHRONIC LYMPHOCYTIC LEUKAEMIA
     Dosage: CYCLE 1 (3000 MG), CYCLE 2-6 (1000 MG)?LAST DAILY DOSE 1000 MG PRIOR TO SAE: 03/JAN/2018
     Route: 042
     Dates: start: 20170816

REACTIONS (3)
  - Hypokalaemia [Recovered/Resolved]
  - Hyperkalaemia [Recovered/Resolved]
  - Staphylococcal sepsis [Not Recovered/Not Resolved]

NARRATIVE: CASE EVENT DATE: 20170928
